FAERS Safety Report 14759083 (Version 2)
Quarter: 2018Q2

REPORT INFORMATION
  Report Type: Report from Study
  Country: US (occurrence: US)
  Receive Date: 20180413
  Receipt Date: 20180530
  Transmission Date: 20180711
  Serious: Yes (Hospitalization)
  Sender: FDA-Public Use
  Company Number: PHEH2018US014195

PATIENT
  Age: 24 Year
  Sex: Female
  Weight: 117.1 kg

DRUGS (1)
  1. COSENTYX [Suspect]
     Active Substance: SECUKINUMAB
     Indication: PSORIASIS
     Dosage: 300 MG, QW
     Route: 058

REACTIONS (2)
  - Tooth abscess [Not Recovered/Not Resolved]
  - Abscess jaw [Unknown]

NARRATIVE: CASE EVENT DATE: 201803
